FAERS Safety Report 23006280 (Version 2)
Quarter: 2023Q4

REPORT INFORMATION
  Report Type: Report from Study
  Country: FR (occurrence: FR)
  Receive Date: 20230929
  Receipt Date: 20231109
  Transmission Date: 20240110
  Serious: Yes (Hospitalization)
  Sender: FDA-Public Use
  Company Number: FR-SA-SAC20230928000397

PATIENT
  Age: 64 Year
  Sex: Female
  Weight: 79.4 kg

DRUGS (8)
  1. ISATUXIMAB [Suspect]
     Active Substance: ISATUXIMAB
     Indication: Plasma cell myeloma
     Dosage: 790 MG
     Route: 041
     Dates: start: 20230919, end: 20230919
  2. ISATUXIMAB [Suspect]
     Active Substance: ISATUXIMAB
     Dosage: 790 MG
     Route: 041
  3. CARFILZOMIB [Suspect]
     Active Substance: CARFILZOMIB
     Indication: Plasma cell myeloma
     Dosage: 104 MG, Q8D
     Route: 042
     Dates: start: 20230919, end: 20230919
  4. CARFILZOMIB [Suspect]
     Active Substance: CARFILZOMIB
     Dosage: 104 MG, Q8D
     Route: 042
  5. LENALIDOMIDE [Suspect]
     Active Substance: LENALIDOMIDE
     Indication: Plasma cell myeloma
     Dosage: 25 MG
     Route: 048
     Dates: start: 20230919, end: 20230919
  6. LENALIDOMIDE [Suspect]
     Active Substance: LENALIDOMIDE
     Dosage: 25 MG
     Route: 048
     Dates: start: 20230924, end: 20230924
  7. DEXAMETHASONE [Suspect]
     Active Substance: DEXAMETHASONE
     Indication: Plasma cell myeloma
     Dosage: 40 MG, Q8D
     Route: 048
     Dates: start: 20230919, end: 20230919
  8. DEXAMETHASONE [Suspect]
     Active Substance: DEXAMETHASONE
     Dosage: 40 MG, Q8D
     Route: 048

REACTIONS (1)
  - Anuria [Recovered/Resolved]

NARRATIVE: CASE EVENT DATE: 20230924
